FAERS Safety Report 7061305-1 (Version None)
Quarter: 2010Q4

REPORT INFORMATION
  Report Type: 
  Country: None (occurrence: None)
  Receive Date: 20101026
  Receipt Date: 20101020
  Transmission Date: 20110411
  Serious: No
  Sender: FDA-Public Use
  Company Number: US-PFIZER INC-2010098754

PATIENT
  Sex: Female
  Weight: 28 kg

DRUGS (4)
  1. GENOTROPIN [Suspect]
     Dosage: 1.3 MG, 1X/DAY
     Route: 058
     Dates: start: 20100607
  2. GENOTROPIN [Suspect]
     Dosage: 1.4 MG, 1X/DAY
     Route: 058
     Dates: start: 20100713
  3. MIRALAX [Concomitant]
     Indication: GASTRIC DISORDER
     Dosage: UNK
  4. PEPCID [Concomitant]
     Indication: GASTRIC DISORDER
     Dosage: UNK

REACTIONS (6)
  - ABDOMINAL PAIN UPPER [None]
  - DECREASED APPETITE [None]
  - HEADACHE [None]
  - NAUSEA [None]
  - PYREXIA [None]
  - VOMITING [None]
